FAERS Safety Report 5528695-X (Version None)
Quarter: 2007Q4

REPORT INFORMATION
  Report Type: 
  Country: None (occurrence: None)
  Receive Date: 20071113
  Receipt Date: 20070223
  Transmission Date: 20080405
  Serious: Yes (Other)
  Sender: FDA-Public Use
  Company Number: HQWYE871126FEB07

PATIENT
  Age: 90 Year
  Sex: Female
  Weight: 63.56 kg

DRUGS (2)
  1. INDERAL [Suspect]
     Indication: HYPERTENSION
     Dosage: 80 MG 2X PER 1 DAY, ORAL ; 40 MG 4X PER 1 DAY, ORAL
     Route: 048
     Dates: start: 20070123
  2. ASPIRIN [Concomitant]

REACTIONS (1)
  - DRUG EFFECT DECREASED [None]
